FAERS Safety Report 4332613-X (Version None)
Quarter: 2004Q2

REPORT INFORMATION
  Report Type: 
  Country: None (occurrence: None)
  Receive Date: 20040401
  Receipt Date: 20040322
  Transmission Date: 20050107
  Serious: Yes (Other)
  Sender: FDA-Public Use
  Company Number: 2004204591GB

PATIENT
  Age: 56 Year
  Sex: Male

DRUGS (6)
  1. CAVERJECT [Suspect]
     Indication: ERECTILE DYSFUNCTION
     Dosage: 1000 UG, UNK, INT CORP CAVERN
     Route: 017
  2. ASPIRIN [Concomitant]
  3. INDAPAMIDE [Concomitant]
  4. ENALAPRIL MALEATE [Concomitant]
  5. VERAPAMIL [Concomitant]
  6. HUMULINE (INSULIN HUMAN, INSULIN HUMAN INJECTION, ISOPHANE) [Concomitant]

REACTIONS (1)
  - DEEP VEIN THROMBOSIS [None]
